FAERS Safety Report 23053750 (Version 1)
Quarter: 2023Q4

REPORT INFORMATION
  Report Type: Spontaneous
  Country: CA (occurrence: CA)
  Receive Date: 20231011
  Receipt Date: 20231011
  Transmission Date: 20240109
  Serious: Yes (Death, Other)
  Sender: FDA-Public Use
  Company Number: CA-MYLANLABS-2023M1106537

PATIENT
  Age: 42 Year
  Sex: Male

DRUGS (15)
  1. VENLAFAXINE [Suspect]
     Active Substance: VENLAFAXINE HYDROCHLORIDE
     Indication: Anxiety
     Dosage: UNK (INITIAL DOSE UNKNOWN)
     Route: 065
  2. VENLAFAXINE [Suspect]
     Active Substance: VENLAFAXINE HYDROCHLORIDE
     Dosage: UNK (GRADUALLY TITRATED DOSE AT 150MG DAILY OVER THE PERIOD OF FEW MONTHS)
     Route: 065
  3. BUPROPION [Suspect]
     Active Substance: BUPROPION
     Indication: Dopamine agonist withdrawal syndrome
     Dosage: 300 MILLIGRAM, QD
     Route: 065
  4. ROTIGOTINE [Suspect]
     Active Substance: ROTIGOTINE
     Indication: Parkinson^s disease
     Dosage: 2 MILLIGRAM (24 HOURS)
     Route: 065
  5. ROTIGOTINE [Suspect]
     Active Substance: ROTIGOTINE
     Dosage: 4 MILLIGRAM (24 HOURS, INCREASED DOSE)
     Route: 065
  6. ROTIGOTINE [Suspect]
     Active Substance: ROTIGOTINE
     Dosage: 8 MILLIGRAM (24 HOURS, INCREASED DOSE)
     Route: 065
  7. ROTIGOTINE [Suspect]
     Active Substance: ROTIGOTINE
     Dosage: 6 MILLIGRAM (24 HOURS, DECREASED DOSE)
     Route: 065
  8. ROTIGOTINE [Suspect]
     Active Substance: ROTIGOTINE
     Dosage: 4 MILLIGRAM (24 HOURS, RECEIVED DECREASED DOSE AFTER 4 MONTHS)
     Route: 065
  9. ROTIGOTINE [Suspect]
     Active Substance: ROTIGOTINE
     Dosage: 2 MILLIGRAM (24 HOURS, RECEIVED FURTHER DECREASED DOSE AFTER 8 MONTHS AND CONTINUED)
     Route: 065
  10. CARBIDOPA\LEVODOPA [Suspect]
     Active Substance: CARBIDOPA\LEVODOPA
     Indication: Parkinson^s disease
     Dosage: UNK (INITIAL DOSE UNKNOWN)
     Route: 065
  11. CARBIDOPA\LEVODOPA [Suspect]
     Active Substance: CARBIDOPA\LEVODOPA
     Indication: Dopamine agonist withdrawal syndrome
     Dosage: UNK (RECEIVED INCREASED DOSE TO 100/25MG THREE TIMES A DAY)
     Route: 065
  12. CARBIDOPA\LEVODOPA [Suspect]
     Active Substance: CARBIDOPA\LEVODOPA
     Dosage: UNK UNK, QID (RECEIVED INCREASED DOSE TO 100/25MG 1.5PILL)
     Route: 065
  13. RASAGILINE [Suspect]
     Active Substance: RASAGILINE
     Indication: Parkinson^s disease
     Dosage: 1 MILLIGRAM, QD
     Route: 065
  14. RASAGILINE [Suspect]
     Active Substance: RASAGILINE
     Indication: Dopamine agonist withdrawal syndrome
  15. VORTIOXETINE [Suspect]
     Active Substance: VORTIOXETINE
     Indication: Dopamine agonist withdrawal syndrome
     Dosage: UNK UNK, QD (RECEIVED UP TO A DOSE OF 10MG)
     Route: 065

REACTIONS (4)
  - Drug ineffective for unapproved indication [Fatal]
  - Completed suicide [Fatal]
  - Erectile dysfunction [Unknown]
  - Off label use [Unknown]
